APPROVED DRUG PRODUCT: HYDROCORTISONE BUTYRATE
Active Ingredient: HYDROCORTISONE BUTYRATE
Strength: 0.1%
Dosage Form/Route: CREAM;TOPICAL
Application: A202145 | Product #001
Applicant: GLENMARK PHARMACEUTICALS LTD
Approved: Sep 27, 2013 | RLD: No | RS: No | Type: DISCN